FAERS Safety Report 12934272 (Version 2)
Quarter: 2016Q4

REPORT INFORMATION
  Report Type: Spontaneous
  Country: ES (occurrence: ES)
  Receive Date: 20161111
  Receipt Date: 20161122
  Transmission Date: 20170207
  Serious: Yes (Other)
  Sender: FDA-Public Use
  Company Number: ES-BAYER-2016-210908

PATIENT
  Age: 50 Year
  Sex: Male

DRUGS (2)
  1. INTERFERON BETA - 1B [Suspect]
     Active Substance: INTERFERON BETA-1B
     Indication: MULTIPLE SCLEROSIS
     Dosage: 250 ?G/8 MIU ON ALTERNATE DAYS
  2. PREDNISONE. [Suspect]
     Active Substance: PREDNISONE
     Indication: EYE INFLAMMATION
     Dosage: 30 MG, UNK
     Route: 048

REACTIONS (7)
  - Tuberculosis [Recovered/Resolved]
  - Immunosuppression [None]
  - Infective uveitis [Recovered/Resolved]
  - Lymphopenia [None]
  - Neutropenia [None]
  - Retinal tear [None]
  - Disseminated tuberculosis [None]
